FAERS Safety Report 7952584-4 (Version None)
Quarter: 2011Q4

REPORT INFORMATION
  Report Type: 
  Country: None (occurrence: None)
  Receive Date: 20111201
  Receipt Date: 20111123
  Transmission Date: 20120403
  Serious: Yes (Hospitalization)
  Sender: FDA-Public Use
  Company Number: DE-BAXTER-2011BH037214

PATIENT
  Age: 67 Year
  Sex: Male
  Weight: 78 kg

DRUGS (3)
  1. RIBOMUSTIN [Concomitant]
     Indication: CHRONIC LYMPHOCYTIC LEUKAEMIA
     Route: 042
     Dates: start: 20110510, end: 20110511
  2. GAMMAGARD LIQUID [Suspect]
     Indication: SELECTIVE IGG SUBCLASS DEFICIENCY
     Route: 042
     Dates: start: 20110530, end: 20110530
  3. GAMMAGARD LIQUID [Suspect]
     Indication: CHRONIC OBSTRUCTIVE PULMONARY DISEASE
     Route: 042
     Dates: start: 20110530, end: 20110530

REACTIONS (10)
  - SINUSITIS NONINFECTIVE [None]
  - RHINITIS [None]
  - BRONCHIECTASIS [None]
  - RESPIRATORY FAILURE [None]
  - PARANASAL SINUS MUCOSAL HYPERTROPHY [None]
  - INFLAMMATORY MARKER INCREASED [None]
  - BODY TEMPERATURE INCREASED [None]
  - PRODUCTIVE COUGH [None]
  - PERTUSSIS [None]
  - HEADACHE [None]
